FAERS Safety Report 18692034 (Version 2)
Quarter: 2021Q1

REPORT INFORMATION
  Report Type: Spontaneous
  Country: US (occurrence: US)
  Receive Date: 20210102
  Receipt Date: 20210119
  Transmission Date: 20210419
  Serious: No
  Sender: FDA-Public Use
  Company Number: US-ASTRAZENECA-2020SF72344

PATIENT
  Age: 735 Month
  Sex: Female
  Weight: 117.9 kg

DRUGS (2)
  1. BYDUREON [Suspect]
     Active Substance: EXENATIDE
     Indication: TYPE 2 DIABETES MELLITUS
     Route: 058
     Dates: start: 202009, end: 20201207
  2. BYDUREON BCISE [Suspect]
     Active Substance: EXENATIDE
     Indication: TYPE 2 DIABETES MELLITUS
     Route: 058
     Dates: start: 20201214

REACTIONS (6)
  - Injection site bruising [Not Recovered/Not Resolved]
  - Diarrhoea [Unknown]
  - Injection site mass [Not Recovered/Not Resolved]
  - Device delivery system issue [Unknown]
  - Vomiting [Unknown]
  - Insurance issue [Unknown]

NARRATIVE: CASE EVENT DATE: 202009
